FAERS Safety Report 20503977 (Version 1)
Quarter: 2022Q1

REPORT INFORMATION
  Report Type: Spontaneous
  Country: US (occurrence: US)
  Receive Date: 20220222
  Receipt Date: 20220222
  Transmission Date: 20220423
  Serious: No
  Sender: FDA-Public Use
  Company Number: US-PFIZER INC-2020465407

PATIENT
  Age: 83 Year
  Sex: Female
  Weight: 90.26 kg

DRUGS (2)
  1. IBRANCE [Suspect]
     Active Substance: PALBOCICLIB
     Indication: Breast cancer
     Dosage: 100 MG, CYCLIC (TABLETS FOR 21 DAYS AND THE STAYS OFF FOR 7 DAYS)
  2. LETROZOLE [Concomitant]
     Active Substance: LETROZOLE
     Dosage: 2.5 MG
     Route: 048

REACTIONS (3)
  - Off label use [Unknown]
  - Weight decreased [Unknown]
  - Blood pressure abnormal [Unknown]
